FAERS Safety Report 5950534-3 (Version None)
Quarter: 2008Q4

REPORT INFORMATION
  Report Type: 
  Country: None (occurrence: None)
  Receive Date: 20081022
  Receipt Date: 20080811
  Transmission Date: 20090506
  Serious: No
  Sender: FDA-Public Use
  Company Number: SPV1-2008-01595

PATIENT
  Age: 56 Year
  Sex: Male
  Weight: 74.8 kg

DRUGS (5)
  1. VYVANSE [Suspect]
     Indication: ATTENTION DEFICIT/HYPERACTIVITY DISORDER
     Dosage: 50 MG, 1X/DAY:QD, ORAL
     Route: 048
     Dates: start: 20080701, end: 20080728
  2. KLONOPIN [Concomitant]
  3. CYMBALTA [Concomitant]
  4. VIAGRA [Concomitant]
  5. LUNESTA [Concomitant]

REACTIONS (4)
  - ABDOMINAL DISCOMFORT [None]
  - DECREASED APPETITE [None]
  - DRUG INEFFECTIVE [None]
  - PRURITUS [None]
